FAERS Safety Report 22100999 (Version 2)
Quarter: 2023Q1

REPORT INFORMATION
  Report Type: Spontaneous
  Country: US (occurrence: US)
  Receive Date: 20230316
  Receipt Date: 20230316
  Transmission Date: 20230417
  Serious: No
  Sender: FDA-Public Use
  Company Number: ENDG22-07350

PATIENT
  Weight: 88.45 kg

DRUGS (2)
  1. EPHEDRINE SULFATE [Suspect]
     Active Substance: EPHEDRINE SULFATE
     Indication: Product used for unknown indication
     Dosage: UNK (VIAL ONE) UNKNOWN, UNKNOWN
     Route: 042
     Dates: start: 20221208, end: 20221208
  2. EPHEDRINE SULFATE [Suspect]
     Active Substance: EPHEDRINE SULFATE
     Dosage: UNK (VIAL TWO) UNKNOWN, UNKNOWN
     Route: 042
     Dates: start: 20221208, end: 20221208

REACTIONS (1)
  - Drug effect less than expected [Recovered/Resolved]

NARRATIVE: CASE EVENT DATE: 20221208
